FAERS Safety Report 10073818 (Version 1)
Quarter: 2014Q2

REPORT INFORMATION
  Report Type: Spontaneous
  Country: GB (occurrence: GB)
  Receive Date: 20140411
  Receipt Date: 20140411
  Transmission Date: 20141212
  Serious: Yes (Life-Threatening, Hospitalization)
  Sender: FDA-Public Use
  Company Number: GB-ASTRAZENECA-2014SE25215

PATIENT
  Age: 68 Year
  Sex: Female
  Weight: 90 kg

DRUGS (9)
  1. LISINOPRIL [Suspect]
     Indication: HYPERTENSION
     Route: 048
  2. LISINOPRIL [Suspect]
     Indication: HYPERTENSION
     Dosage: DIFFERENT MANUFACTURER, 20MG DAILY
     Route: 048
  3. CLENIL MODULITE [Concomitant]
  4. FELODIPINE [Concomitant]
  5. METFORMIN [Concomitant]
  6. PIOGLITAZONE [Concomitant]
  7. QUININE [Concomitant]
  8. SALBUTAMOL [Concomitant]
  9. SIMVASTATIN [Concomitant]

REACTIONS (2)
  - Angioedema [Recovered/Resolved]
  - Product substitution issue [Unknown]
